FAERS Safety Report 18693250 (Version 2)
Quarter: 2021Q1

REPORT INFORMATION
  Report Type: Spontaneous
  Country: US (occurrence: US)
  Receive Date: 20210104
  Receipt Date: 20210202
  Transmission Date: 20210419
  Serious: Yes (Other)
  Sender: FDA-Public Use
  Company Number: US-ASTRAZENECA-2020SF75820

PATIENT
  Age: 65 Year
  Sex: Female
  Weight: 89.4 kg

DRUGS (1)
  1. BYDUREON BCISE [Suspect]
     Active Substance: EXENATIDE
     Indication: INSULIN RESISTANT DIABETES
     Route: 058
     Dates: start: 2018

REACTIONS (4)
  - Incorrect dose administered by device [Not Recovered/Not Resolved]
  - Injection site nodule [Recovered/Resolved]
  - Product physical issue [Unknown]
  - Systemic lupus erythematosus [Unknown]

NARRATIVE: CASE EVENT DATE: 2018
